FAERS Safety Report 4521050-0 (Version None)
Quarter: 2004Q4

REPORT INFORMATION
  Report Type: 
  Country: None (occurrence: None)
  Receive Date: 20041206
  Receipt Date: 20041124
  Transmission Date: 20050328
  Serious: Yes (Hospitalization)
  Sender: FDA-Public Use
  Company Number: 2004-115406-NL

PATIENT
  Age: 47 Year
  Sex: Female

DRUGS (2)
  1. MIRTAZAPINE [Suspect]
     Indication: HORMONE REPLACEMENT THERAPY
     Dosage: 30 MG QD
     Dates: start: 20021101, end: 20030614
  2. BETAHISTINE HYDROCHLORIDE [Suspect]
     Indication: VERTIGO
     Dosage: MC
     Dates: start: 20030604, end: 20030624

REACTIONS (7)
  - ARRHYTHMIA [None]
  - DISTURBANCE IN ATTENTION [None]
  - MANIA [None]
  - MENTAL IMPAIRMENT [None]
  - SYNCOPE [None]
  - VERTIGO [None]
  - WHITE BLOOD CELL COUNT DECREASED [None]
